FAERS Safety Report 11985197 (Version 1)
Quarter: 2016Q1

REPORT INFORMATION
  Report Type: Spontaneous
  Country: US (occurrence: US)
  Receive Date: 20160201
  Receipt Date: 20160201
  Transmission Date: 20160526
  Serious: Yes (Other)
  Sender: FDA-Public Use
  Company Number: US-BAYER-2016-015091

PATIENT
  Age: 76 Year
  Sex: Male
  Weight: 65.76 kg

DRUGS (1)
  1. AFRIN ORIGINAL [Suspect]
     Active Substance: OXYMETAZOLINE HYDROCHLORIDE
     Indication: EPISTAXIS
     Dosage: 1 DF, PRN
     Route: 045
     Dates: start: 2006

REACTIONS (3)
  - Therapeutic response unexpected [None]
  - Product use issue [None]
  - Adenoid cystic carcinoma [Not Recovered/Not Resolved]

NARRATIVE: CASE EVENT DATE: 2006
